FAERS Safety Report 7041736-6 (Version None)
Quarter: 2010Q4

REPORT INFORMATION
  Report Type: 
  Country: None (occurrence: None)
  Receive Date: 20101013
  Receipt Date: 20090827
  Transmission Date: 20110411
  Serious: No
  Sender: FDA-Public Use
  Company Number: US-ASTRAZENECA-2009SE10361

PATIENT
  Age: 29699 Day
  Sex: Male
  Weight: 122.5 kg

DRUGS (4)
  1. SYMBICORT [Suspect]
     Indication: CHRONIC OBSTRUCTIVE PULMONARY DISEASE
     Dosage: 160/4.5 120 2 PUFF BID.
     Route: 055
     Dates: start: 20090610
  2. SPIRIVA [Concomitant]
     Indication: CHRONIC OBSTRUCTIVE PULMONARY DISEASE
  3. GLYPIZIDE [Concomitant]
     Indication: DIABETES MELLITUS
  4. TERAZISON [Concomitant]
     Indication: PROSTATOMEGALY

REACTIONS (3)
  - HEADACHE [None]
  - NASAL CONGESTION [None]
  - SINUS DISORDER [None]
